FAERS Safety Report 9618385 (Version 1)
Quarter: 2013Q4

REPORT INFORMATION
  Report Type: Spontaneous
  Country: US (occurrence: US)
  Receive Date: 20131014
  Receipt Date: 20131014
  Transmission Date: 20140711
  Serious: No
  Sender: FDA-Public Use
  Company Number: US-009507513-1310USA003959

PATIENT
  Sex: Female

DRUGS (2)
  1. PEGINTRON [Suspect]
     Indication: HEPATITIS C
     Dosage: UNK,REDIPEN
     Dates: start: 20130927
  2. REBETOL [Suspect]
     Indication: HEPATITIS C
     Dosage: UNK
     Route: 048
     Dates: start: 20130927

REACTIONS (4)
  - Headache [Not Recovered/Not Resolved]
  - Pruritus generalised [Unknown]
  - Influenza like illness [Unknown]
  - Pain [Unknown]
